FAERS Safety Report 10541294 (Version 1)
Quarter: 2014Q4

REPORT INFORMATION
  Report Type: Spontaneous
  Country: US (occurrence: US)
  Receive Date: 20141024
  Receipt Date: 20141024
  Transmission Date: 20150529
  Serious: Yes (Hospitalization, Other)
  Sender: FDA-Public Use
  Company Number: US-FRI-1000071730

PATIENT
  Age: 37 Year
  Sex: Female

DRUGS (6)
  1. VANCOMYCIN [Concomitant]
     Active Substance: VANCOMYCIN
     Route: 065
  2. CEFTAROLINE FOSAMIL [Suspect]
     Active Substance: CEFTAROLINE FOSAMIL
     Indication: ARTHRITIS BACTERIAL
     Dosage: 1800 MG
     Route: 042
  3. CEFTAROLINE FOSAMIL [Suspect]
     Active Substance: CEFTAROLINE FOSAMIL
     Indication: STAPHYLOCOCCAL BACTERAEMIA
     Dosage: 1200 MG
     Route: 042
  4. CEFTAROLINE FOSAMIL [Suspect]
     Active Substance: CEFTAROLINE FOSAMIL
     Indication: ARTHRITIS BACTERIAL
     Dosage: 1200 MG
     Route: 042
  5. CUBICIN [Suspect]
     Active Substance: DAPTOMYCIN
     Indication: STAPHYLOCOCCAL BACTERAEMIA
     Route: 042
  6. CEFTAROLINE FOSAMIL [Suspect]
     Active Substance: CEFTAROLINE FOSAMIL
     Indication: STAPHYLOCOCCAL BACTERAEMIA
     Dosage: 1800 MG
     Route: 042

REACTIONS (7)
  - Pyelonephritis [Unknown]
  - Arthritis bacterial [Unknown]
  - Neutrophil count decreased [Recovered/Resolved]
  - Renal abscess [Unknown]
  - Eosinophilia [Unknown]
  - White blood cell count decreased [Recovered/Resolved]
  - Blood creatine phosphokinase increased [Unknown]
